FAERS Safety Report 10196624 (Version 1)
Quarter: 2014Q2

REPORT INFORMATION
  Report Type: Spontaneous
  Country: US (occurrence: None)
  Receive Date: 20140523
  Receipt Date: 20140523
  Transmission Date: 20141212
  Serious: No
  Sender: FDA-Public Use
  Company Number: None

PATIENT
  Age: 52 Year
  Sex: Male

DRUGS (1)
  1. HUMIRA [Suspect]
     Indication: PSORIASIS
     Dosage: HUMIRA 40 MG?EVERY OTHER WEEK ?SQ
     Dates: start: 20140304, end: 20140430

REACTIONS (2)
  - Paraesthesia oral [None]
  - Paraesthesia [None]
